FAERS Safety Report 15625636 (Version 3)
Quarter: 2018Q4

REPORT INFORMATION
  Report Type: Spontaneous
  Country: CH (occurrence: CH)
  Receive Date: 20181116
  Receipt Date: 20181211
  Transmission Date: 20190205
  Serious: Yes (Other)
  Sender: FDA-Public Use
  Company Number: PHHY2018CH152578

PATIENT
  Age: 47 Year
  Sex: Female

DRUGS (3)
  1. COSENTYX [Suspect]
     Active Substance: SECUKINUMAB
     Indication: PSORIATIC ARTHROPATHY
     Dosage: UNK
     Route: 058
     Dates: start: 20180730, end: 20181003
  2. IRFEN [Concomitant]
     Active Substance: IBUPROFEN
     Indication: PRODUCT USED FOR UNKNOWN INDICATION
     Dosage: UNK
     Route: 065
  3. TRAMAL [Concomitant]
     Active Substance: TRAMADOL
     Indication: PRODUCT USED FOR UNKNOWN INDICATION
     Dosage: 30 DRP, QD(20-30 DROPS AT NIGHT)
     Route: 065

REACTIONS (11)
  - Back pain [Unknown]
  - Condition aggravated [Unknown]
  - Vertigo [Unknown]
  - Lung adenocarcinoma [Unknown]
  - Lung disorder [Unknown]
  - Chest pain [Unknown]
  - Asthenia [Unknown]
  - Lymphangiosis carcinomatosa [Unknown]
  - Discomfort [Unknown]
  - Dyspnoea [Unknown]
  - Weight decreased [Unknown]
